FAERS Safety Report 12166349 (Version 2)
Quarter: 2016Q1

REPORT INFORMATION
  Report Type: Spontaneous
  Country: US (occurrence: US)
  Receive Date: 20160309
  Receipt Date: 20160315
  Transmission Date: 20160526
  Serious: Yes (Hospitalization)
  Sender: FDA-Public Use
  Company Number: US-FRESENIUS MEDICAL CARE NORTH AMERICA-1048869

PATIENT
  Age: 27 Year
  Sex: Female
  Weight: 101.6 kg

DRUGS (1)
  1. DELFLEX [Suspect]
     Active Substance: CALCIUM CHLORIDE\DEXTROSE\MAGNESIUM CHLORIDE\SODIUM CHLORIDE\SODIUM LACTATE

REACTIONS (5)
  - Nausea [Recovering/Resolving]
  - Azotaemia [Recovering/Resolving]
  - Vomiting [Recovering/Resolving]
  - Therapy cessation [None]
  - Medication error [None]

NARRATIVE: CASE EVENT DATE: 201601
